FAERS Safety Report 21372234 (Version 2)
Quarter: 2022Q3

REPORT INFORMATION
  Report Type: Spontaneous
  Country: HU (occurrence: HU)
  Receive Date: 20220924
  Receipt Date: 20220930
  Transmission Date: 20221026
  Serious: Yes (Other)
  Sender: FDA-Public Use
  Company Number: HU-JNJFOC-20220920993

PATIENT
  Age: 74 Year
  Sex: Female

DRUGS (2)
  1. IMBRUVICA [Suspect]
     Active Substance: IBRUTINIB
     Indication: Product used for unknown indication
     Route: 048
     Dates: start: 202203
  2. SYNCUMAR [Suspect]
     Active Substance: ACENOCOUMAROL
     Indication: Anticoagulant therapy
     Route: 065

REACTIONS (3)
  - Wound haemorrhage [Unknown]
  - Haematoma [Unknown]
  - Fall [Unknown]

NARRATIVE: CASE EVENT DATE: 20220801
